FAERS Safety Report 8739879 (Version 2)
Quarter: 2012Q4

REPORT INFORMATION
  Report Type: Report from Study
  Country: FR (occurrence: FR)
  Receive Date: 20120823
  Receipt Date: 20121127
  Transmission Date: 20130627
  Serious: Yes (Hospitalization, Other)
  Sender: FDA-Public Use
  Company Number: FR-009507513-1208FRA007332

PATIENT
  Age: 49 Year
  Sex: Female
  Weight: 70 kg

DRUGS (2)
  1. ISENTRESS [Suspect]
     Indication: HIV INFECTION
     Dosage: 400 mg, bid
     Route: 048
     Dates: start: 20120710, end: 20120816
  2. CELSENTRI [Suspect]
     Indication: HIV INFECTION
     Dosage: 300 mg, bid
     Route: 048
     Dates: start: 20120710, end: 20120816

REACTIONS (4)
  - Rash [Unknown]
  - Pyrexia [Unknown]
  - Diarrhoea [Unknown]
  - Blood HIV RNA increased [Recovered/Resolved]
